FAERS Safety Report 20172648 (Version 1)
Quarter: 2021Q4

REPORT INFORMATION
  Report Type: Spontaneous
  Country: HR (occurrence: HR)
  Receive Date: 20211211
  Receipt Date: 20211211
  Transmission Date: 20220303
  Serious: Yes (Other)
  Sender: FDA-Public Use
  Company Number: None

PATIENT
  Sex: Female

DRUGS (2)
  1. VENLAFAXINE HYDROCHLORIDE [Suspect]
     Active Substance: VENLAFAXINE HYDROCHLORIDE
     Dosage: TABLE, ADR IS ADEQUATELY LABELLED: NO, ADR IS ADEQUATELY LABELLED: SOMNOLENCE, MYDRIASIS, ADR IS NOT
     Route: 048
     Dates: start: 20210719, end: 20210719
  2. ALPRAZOLAM [Suspect]
     Active Substance: ALPRAZOLAM
     Dosage: TABLE, ADR IS ADEQUATELY LABELLED: NO, ADR IS ADEQUATELY LABELLED: SOMNOLENCE, MYDRIASIS, ADR IS NOT
     Route: 048
     Dates: start: 20210719, end: 20210719

REACTIONS (5)
  - Intentional overdose [Unknown]
  - Dysarthria [Unknown]
  - Suicide attempt [Unknown]
  - Mydriasis [Unknown]
  - Somnolence [Unknown]

NARRATIVE: CASE EVENT DATE: 20210719
